FAERS Safety Report 5820125-3 (Version None)
Quarter: 2008Q3

REPORT INFORMATION
  Report Type: 
  Country: None (occurrence: None)
  Receive Date: 20080724
  Receipt Date: 20080710
  Transmission Date: 20090109
  Serious: Yes (Other)
  Sender: FDA-Public Use
  Company Number: PHHY2008DE11632

PATIENT
  Sex: Male
  Weight: 51 kg

DRUGS (4)
  1. SANDIMMUNE [Suspect]
     Indication: RENAL TRANSPLANT
     Dosage: 110 MG, BID
     Dates: start: 19880101
  2. SANDIMMUNE [Suspect]
     Dosage: 100 MG, BID
  3. MYFORTIC [Suspect]
     Indication: RENAL TRANSPLANT
     Dosage: 360 MG, BID
  4. MYFORTIC [Suspect]
     Dosage: 540 MG, BID

REACTIONS (3)
  - NEOPLASM [None]
  - OPPORTUNISTIC INFECTION [None]
  - UVEITIS [None]
